FAERS Safety Report 13103530 (Version 1)
Quarter: 2017Q1

REPORT INFORMATION
  Report Type: Spontaneous
  Country: GB (occurrence: GB)
  Receive Date: 20170111
  Receipt Date: 20170111
  Transmission Date: 20170428
  Serious: Yes (Hospitalization)
  Sender: FDA-Public Use
  Company Number: GB-DEXPHARM-20170011

PATIENT
  Age: 83 Year
  Sex: Male

DRUGS (11)
  1. COCODAMOL [Concomitant]
     Active Substance: ACETAMINOPHEN\CODEINE PHOSPHATE
     Dosage: 8/500
  2. SIMVASTATIN. [Concomitant]
     Active Substance: SIMVASTATIN
  3. LANSOPRAZOLE. [Concomitant]
     Active Substance: LANSOPRAZOLE
  4. NICORANDIL [Concomitant]
     Active Substance: NICORANDIL
  5. SOLIFENACIN [Concomitant]
     Active Substance: SOLIFENACIN
  6. CANDESARTAN [Suspect]
     Active Substance: CANDESARTAN
     Dosage: DAILY DOSE: 4 MG MILLGRAM(S) EVERY DAYS
  7. DIORALYTE [Concomitant]
     Active Substance: CITRIC ACID MONOHYDRATE\DEXTROSE\POTASSIUM CATION\SODIUM CHLORIDE
     Route: 048
  8. GLYCERYL TRINITRATE [Suspect]
     Active Substance: NITROGLYCERIN
     Dosage: 1-2
     Route: 060
  9. BISOPROLOL [Suspect]
     Active Substance: BISOPROLOL
     Dosage: DAILY DOSE: 5 MG MILLGRAM(S) EVERY DAYS
  10. ISOSORBIDE MONONITRATE. [Suspect]
     Active Substance: ISOSORBIDE MONONITRATE
     Dosage: DAILY DOSE: 60 MG MILLGRAM(S) EVERY DAYS
  11. COLECALCIFEROL [Concomitant]
     Active Substance: CHOLECALCIFEROL

REACTIONS (4)
  - Circulatory collapse [Recovered/Resolved]
  - Hyperkalaemia [Recovered/Resolved]
  - Hypotension [Unknown]
  - Acute kidney injury [Not Recovered/Not Resolved]
